FAERS Safety Report 12956804 (Version 3)
Quarter: 2017Q1

REPORT INFORMATION
  Report Type: Spontaneous
  Country: JP (occurrence: JP)
  Receive Date: 20161118
  Receipt Date: 20170203
  Transmission Date: 20170428
  Serious: Yes (Other)
  Sender: FDA-Public Use
  Company Number: JP-ABBVIE-16K-087-1747726-00

PATIENT
  Age: 31 Year
  Sex: Female
  Weight: 44 kg

DRUGS (4)
  1. HUMIRA [Suspect]
     Active Substance: ADALIMUMAB
     Indication: CROHN^S DISEASE
     Route: 058
     Dates: start: 20120416
  2. CROTAMITON [Concomitant]
     Active Substance: CROTAMITON
     Indication: RASH
     Dosage: SEVERAL TIMES A DAY
     Route: 061
     Dates: start: 20160720
  3. MESALAZINE [Concomitant]
     Active Substance: MESALAMINE
     Indication: CROHN^S DISEASE
     Route: 048
     Dates: start: 20031102
  4. TACALCITOL HYDRATE [Concomitant]
     Indication: RASH
     Dosage: SEVERAL TIMES A DAY
     Route: 061
     Dates: start: 20160720

REACTIONS (3)
  - Foetal death [Unknown]
  - Abortion spontaneous [Recovered/Resolved]
  - Exposure during pregnancy [Unknown]

NARRATIVE: CASE EVENT DATE: 20161006
